FAERS Safety Report 7028086-9 (Version None)
Quarter: 2010Q4

REPORT INFORMATION
  Report Type: 
  Country: None (occurrence: None)
  Receive Date: 20101005
  Receipt Date: 20100921
  Transmission Date: 20110411
  Serious: Yes (Other)
  Sender: FDA-Public Use
  Company Number: US-RANBAXY-2010RR-38499

PATIENT
  Sex: Female

DRUGS (4)
  1. CIPROFLOXACIN [Suspect]
     Indication: OROPHARYNGEAL PAIN
     Dosage: 500 MG, UNK
     Route: 065
  2. CIPROFLOXACIN [Suspect]
     Dosage: 750 MG, UNK
  3. LEVAQUIN [Suspect]
     Indication: SINUSITIS
     Dosage: 500 MG, QD
     Route: 048
     Dates: start: 20070118, end: 20070423
  4. LEVAQUIN [Suspect]
     Indication: OROPHARYNGEAL PAIN

REACTIONS (1)
  - MENISCUS LESION [None]
